FAERS Safety Report 12586759 (Version 2)
Quarter: 2016Q3

REPORT INFORMATION
  Report Type: Spontaneous
  Country: IT (occurrence: IT)
  Receive Date: 20160725
  Receipt Date: 20160728
  Transmission Date: 20161109
  Serious: Yes (Other)
  Sender: FDA-Public Use
  Company Number: IT-ROCHE-1800371

PATIENT
  Age: 77 Year
  Sex: Male
  Weight: 69 kg

DRUGS (7)
  1. LEDERFOLIN [Concomitant]
     Active Substance: LEUCOVORIN CALCIUM
     Indication: RECTAL ADENOCARCINOMA
     Route: 042
     Dates: start: 20150811
  2. AVASTIN [Suspect]
     Active Substance: BEVACIZUMAB
     Indication: RECTAL ADENOCARCINOMA
     Dosage: CYCLICAL
     Route: 042
     Dates: start: 20150811
  3. AVASTIN [Suspect]
     Active Substance: BEVACIZUMAB
     Dosage: CYCLICAL
     Route: 042
     Dates: start: 20150922
  4. AVASTIN [Suspect]
     Active Substance: BEVACIZUMAB
     Dosage: CYCLICAL
     Route: 042
     Dates: start: 20151119
  5. ACEQUIDE [Concomitant]
  6. FLUOROURACIL. [Suspect]
     Active Substance: FLUOROURACIL
     Dosage: CYCLICAL
     Route: 042
     Dates: start: 20150811
  7. FLUOROURACIL. [Suspect]
     Active Substance: FLUOROURACIL
     Indication: RECTAL ADENOCARCINOMA
     Dosage: CYCLICAL
     Route: 040
     Dates: start: 20150811

REACTIONS (3)
  - Hyperglycaemia [Recovering/Resolving]
  - Cardiotoxicity [Recovering/Resolving]
  - Headache [Recovering/Resolving]

NARRATIVE: CASE EVENT DATE: 20150904
